FAERS Safety Report 16680151 (Version 1)
Quarter: 2019Q3

REPORT INFORMATION
  Report Type: Spontaneous
  Country: DE (occurrence: DE)
  Receive Date: 20190807
  Receipt Date: 20190807
  Transmission Date: 20191004
  Serious: Yes (Hospitalization, Other)
  Sender: FDA-Public Use
  Company Number: DE-PFIZER INC-2019337856

PATIENT
  Sex: Female

DRUGS (3)
  1. CLONIDINE. [Suspect]
     Active Substance: CLONIDINE
     Dosage: 150 MG, 1X/DAY (QD, LONG-TERM MEDICATION)
  2. RAMIPRIL. [Suspect]
     Active Substance: RAMIPRIL
     Dosage: 2.5 MG, 2X/DAY (Q12H (1-0-1)LONG-TERM MEDICATION)
  3. SINUPRET EXTRACT [Suspect]
     Active Substance: HERBALS
     Indication: SINUSITIS
     Dosage: UNK

REACTIONS (4)
  - Burning sensation mucosal [Recovered/Resolved]
  - Rhinalgia [Recovered/Resolved]
  - Blood pressure increased [Recovered/Resolved]
  - Parosmia [Recovered/Resolved]

NARRATIVE: CASE EVENT DATE: 20190704
